APPROVED DRUG PRODUCT: DIGOXIN
Active Ingredient: DIGOXIN
Strength: 0.25MG
Dosage Form/Route: TABLET;ORAL
Application: A076268 | Product #002 | TE Code: AB
Applicant: JEROME STEVENS PHARMACEUTICALS INC
Approved: Jul 26, 2002 | RLD: No | RS: No | Type: RX